FAERS Safety Report 19478347 (Version 1)
Quarter: 2021Q2

REPORT INFORMATION
  Report Type: Spontaneous
  Country: US (occurrence: US)
  Receive Date: 20210630
  Receipt Date: 20210630
  Transmission Date: 20210717
  Serious: Yes (Death, Hospitalization, Other)
  Sender: FDA-Public Use
  Company Number: US-PARI RESPIRATORY EQUIPMENT, INC.-2021PAR00037

PATIENT
  Age: 12 Year
  Sex: Female
  Weight: 33.52 kg

DRUGS (5)
  1. LOW?OGESTREL [Concomitant]
     Active Substance: ETHINYL ESTRADIOL\NORGESTREL
  2. KITABIS PAK [Suspect]
     Active Substance: TOBRAMYCIN
     Indication: CYSTIC FIBROSIS
     Dosage: INAHLE 1 AMPULE (300/5 MG/ML) VIA NEBULIZER, 2X/DAY FOR 28 DAYS ON AND 28 DAYS OFF
  3. KITABIS PAK [Suspect]
     Active Substance: TOBRAMYCIN
     Dosage: INAHLE 1 AMPULE (300/5 MG/ML) VIA NEBULIZER, 2X/DAY FOR 14 DAYS ON AND 14 DAYS OFF
  4. FERROUS SULFATE. [Concomitant]
     Active Substance: FERROUS SULFATE
  5. EPIDIOLEX [Concomitant]
     Active Substance: CANNABIDIOL

REACTIONS (6)
  - Hospitalisation [Unknown]
  - Death [Fatal]
  - Pyrexia [Unknown]
  - Secretion discharge [Unknown]
  - Intentional product use issue [Recovered/Resolved]
  - Staphylococcal infection [Unknown]

NARRATIVE: CASE EVENT DATE: 202104
